FAERS Safety Report 4571935-4 (Version None)
Quarter: 2005Q1

REPORT INFORMATION
  Report Type: 
  Country: None (occurrence: None)
  Receive Date: 20050203
  Receipt Date: 20050203
  Transmission Date: 20050727
  Serious: Yes (Hospitalization)
  Sender: FDA-Public Use
  Company Number: None

PATIENT
  Age: 61 Year
  Sex: Male
  Weight: 83.9154 kg

DRUGS (1)
  1. VIOXX [Suspect]
     Indication: PAIN
     Dosage: 1 QD
     Dates: start: 20010712, end: 20011029

REACTIONS (1)
  - MYOCARDIAL INFARCTION [None]
